FAERS Safety Report 8603331-4 (Version None)
Quarter: 2012Q3

REPORT INFORMATION
  Report Type: 
  Country: None (occurrence: None)
  Receive Date: 20120817
  Receipt Date: 20120808
  Transmission Date: 20120928
  Serious: Yes (Other)
  Sender: FDA-Public Use
  Company Number: BR-BRISTOL-MYERS SQUIBB COMPANY-16852170

PATIENT
  Age: 78 Year
  Sex: Male
  Weight: 65 kg

DRUGS (3)
  1. IRBESARTAN AND HYDROCHLOROTHIAZIDE [Suspect]
     Dosage: 1 DF = 150MG/12.5MG, TABS
     Route: 048
     Dates: start: 20060101
  2. ASPIRIN [Concomitant]
     Dosage: 1 DF = 2 TABS
     Route: 048
     Dates: start: 20060101
  3. ATENOLOL [Concomitant]
     Dosage: 1 DF = 2 TABS
     Route: 048
     Dates: start: 20060101

REACTIONS (1)
  - CATARACT [None]
